FAERS Safety Report 13109040 (Version 2)
Quarter: 2017Q1

REPORT INFORMATION
  Report Type: Spontaneous
  Country: US (occurrence: US)
  Receive Date: 20170112
  Receipt Date: 20170308
  Transmission Date: 20170428
  Serious: Yes (Hospitalization, Other)
  Sender: FDA-Public Use
  Company Number: US-PFIZER INC-2017012378

PATIENT
  Age: 59 Year
  Sex: Female

DRUGS (11)
  1. NORVASC [Suspect]
     Active Substance: AMLODIPINE BESYLATE
     Indication: BLOOD PRESSURE MEASUREMENT
     Dosage: 1 DF, UNK
     Dates: start: 2007
  2. VIVELLE-DOT [Concomitant]
     Active Substance: ESTRADIOL
     Dosage: UNK
  3. HCTZ [Concomitant]
     Active Substance: HYDROCHLOROTHIAZIDE
     Indication: BLOOD PRESSURE MEASUREMENT
     Dosage: UNK
     Dates: start: 2010
  4. CORGARD [Concomitant]
     Active Substance: NADOLOL
     Indication: BLOOD PRESSURE ABNORMAL
     Dosage: 40 MG, DAILY
     Dates: start: 201612
  5. IMITREX [Concomitant]
     Active Substance: SUMATRIPTAN SUCCINATE
     Indication: MIGRAINE
     Dosage: UNK UNK, AS NEEDED (PRN)
     Dates: start: 2007
  6. PARSLEY. [Concomitant]
     Active Substance: PARSLEY
     Dosage: UNK
  7. GARLIC. [Concomitant]
     Active Substance: GARLIC
     Dosage: UNK
  8. CELERY SEED EXTRACT [Concomitant]
     Active Substance: CELERY SEED
     Dosage: UNK
  9. ULTRACET [Concomitant]
     Active Substance: ACETAMINOPHEN\TRAMADOL HYDROCHLORIDE
     Dosage: UNK UNK, AS NEEDED
  10. ECOTRIM [Concomitant]
     Dosage: UNK
  11. FLEXERIL [Concomitant]
     Active Substance: CYCLOBENZAPRINE HYDROCHLORIDE
     Dosage: UNK UNK, AS NEEDED

REACTIONS (3)
  - Cerebrovascular accident [Recovered/Resolved]
  - Hypoaesthesia [Unknown]
  - Balance disorder [Unknown]

NARRATIVE: CASE EVENT DATE: 2007
